FAERS Safety Report 4703538-2 (Version None)
Quarter: 2005Q2

REPORT INFORMATION
  Report Type: 
  Country: None (occurrence: None)
  Receive Date: 20050630
  Receipt Date: 20050617
  Transmission Date: 20051028
  Serious: Yes (Hospitalization)
  Sender: FDA-Public Use
  Company Number: US-JNJFOC-20041102576

PATIENT
  Sex: Female
  Weight: 56.7 kg

DRUGS (4)
  1. DURAGESIC-100 [Suspect]
  2. DURAGESIC-100 [Suspect]
  3. DURAGESIC-100 [Suspect]
  4. DURAGESIC-100 [Suspect]

REACTIONS (46)
  - ANXIETY [None]
  - ARTHROPATHY [None]
  - ASTHENIA [None]
  - BACK PAIN [None]
  - BLOOD CORTISOL INCREASED [None]
  - CHEST PAIN [None]
  - CROHN'S DISEASE [None]
  - CULTURE URINE POSITIVE [None]
  - DEHYDRATION [None]
  - DIZZINESS [None]
  - DYSGEUSIA [None]
  - DYSPHONIA [None]
  - DYSPNOEA [None]
  - FLUSHING [None]
  - GASTRITIS [None]
  - GASTROINTESTINAL HAEMORRHAGE [None]
  - HEADACHE [None]
  - HYDRONEPHROSIS [None]
  - HYPERHIDROSIS [None]
  - HYPERTENSION [None]
  - HYPOAESTHESIA [None]
  - HYPONATRAEMIA [None]
  - INSOMNIA [None]
  - INTERVERTEBRAL DISC PROTRUSION [None]
  - INTESTINAL OBSTRUCTION [None]
  - MYOCLONUS [None]
  - NAUSEA [None]
  - NERVOUSNESS [None]
  - OSTEOPOROSIS [None]
  - PAIN [None]
  - PAIN IN EXTREMITY [None]
  - PARAESTHESIA [None]
  - PAROTITIS [None]
  - POLLAKIURIA [None]
  - POSTURAL ORTHOSTATIC TACHYCARDIA SYNDROME [None]
  - RASH [None]
  - RAYNAUD'S PHENOMENON [None]
  - RENAL CYST [None]
  - TENDONITIS [None]
  - TINNITUS [None]
  - TRANSIENT ISCHAEMIC ATTACK [None]
  - URINARY RETENTION [None]
  - URINARY TRACT INFECTION [None]
  - VISION BLURRED [None]
  - VOMITING [None]
  - WEIGHT DECREASED [None]
